FAERS Safety Report 5889268-2 (Version None)
Quarter: 2008Q3

REPORT INFORMATION
  Report Type: 
  Country: None (occurrence: None)
  Receive Date: 20080919
  Receipt Date: 20080910
  Transmission Date: 20090109
  Serious: Yes (Death, Hospitalization)
  Sender: FDA-Public Use
  Company Number: ES-ROCHE-585504

PATIENT
  Sex: Male
  Weight: 75 kg

DRUGS (5)
  1. CAPECITABINE [Suspect]
     Dosage: DOSAGE FORM: COMP. THERAPY TEMPORARILY INTERRUPTED
     Route: 048
     Dates: start: 20080819, end: 20080902
  2. BEVACIZUMAB [Suspect]
     Dosage: DOSAGE FORM: SERUM
     Route: 054
     Dates: start: 20080819, end: 20080909
  3. OXALIPLATIN [Suspect]
     Dosage: DOSAGE FORM: SERUM
     Route: 042
     Dates: start: 20080819, end: 20080909
  4. ENALAPRIL [Concomitant]
  5. PRAVASTATINA [Concomitant]

REACTIONS (1)
  - DIARRHOEA [None]
